FAERS Safety Report 7309222-3 (Version None)
Quarter: 2011Q1

REPORT INFORMATION
  Report Type: 
  Country: None (occurrence: None)
  Receive Date: 20110223
  Receipt Date: 20110216
  Transmission Date: 20110831
  Serious: Yes (Other)
  Sender: FDA-Public Use
  Company Number: IE-AMGEN-IRLSP2011009264

PATIENT
  Sex: Female

DRUGS (3)
  1. NEULASTA [Suspect]
     Indication: CHEMOTHERAPY
     Dosage: 6 MG, Q3WK
     Route: 058
  2. DEXAMETHASONE [Concomitant]
  3. ANTINEOPLASTIC AGENTS [Concomitant]

REACTIONS (3)
  - INFLUENZA LIKE ILLNESS [None]
  - BONE PAIN [None]
  - INSOMNIA [None]
